FAERS Safety Report 8559456-5 (Version None)
Quarter: 2012Q3

REPORT INFORMATION
  Report Type: 
  Country: None (occurrence: None)
  Receive Date: 20120802
  Receipt Date: 20120724
  Transmission Date: 20120928
  Serious: Yes (Other)
  Sender: FDA-Public Use
  Company Number: BR-JNJFOC-20120712758

PATIENT

DRUGS (2)
  1. ITRACONAZOLE [Suspect]
     Indication: CHROMOBLASTOMYCOSIS
     Dosage: BETWEEN 200 MG DAY 1 AND 400 MG DAY 1 DEPENDING ON THE SEVERITY OF THE LESION.
     Route: 065
  2. AMPHOTERICIN B [Suspect]
     Indication: CHROMOBLASTOMYCOSIS
     Dosage: WHEN NECESSARY
     Route: 065

REACTIONS (2)
  - SQUAMOUS CELL CARCINOMA [None]
  - NO THERAPEUTIC RESPONSE [None]
